FAERS Safety Report 8799625 (Version 3)
Quarter: 2012Q4

REPORT INFORMATION
  Report Type: 
  Country: US (occurrence: US)
  Receive Date: 20120919
  Receipt Date: 20121022
  Transmission Date: 20130627
  Serious: No
  Sender: FDA-Public Use
  Company Number: US-009507513-1209USA005837

PATIENT
  Sex: Male

DRUGS (3)
  1. EMEND [Suspect]
     Indication: PROPHYLAXIS OF NAUSEA AND VOMITING
     Dosage: 150 mg, same frequency (20-30 min)
     Route: 042
  2. CISPLATIN [Concomitant]
  3. TAXOTERE [Concomitant]

REACTIONS (3)
  - Infusion site erythema [Recovered/Resolved]
  - Infusion site irritation [Recovered/Resolved]
  - Infusion site swelling [Recovered/Resolved]
